FAERS Safety Report 8443569-2 (Version None)
Quarter: 2012Q2

REPORT INFORMATION
  Report Type: 
  Country: None (occurrence: None)
  Receive Date: 20120618
  Receipt Date: 20120611
  Transmission Date: 20120825
  Serious: Yes (Other)
  Sender: FDA-Public Use
  Company Number: US-PFIZER INC-2012140434

PATIENT
  Sex: Male
  Weight: 70.295 kg

DRUGS (1)
  1. DETROL [Suspect]
     Indication: INCONTINENCE
     Dosage: 2 MG, DAILY

REACTIONS (1)
  - DYSURIA [None]
